FAERS Safety Report 10901838 (Version 1)
Quarter: 2015Q1

REPORT INFORMATION
  Report Type: Spontaneous
  Country: US (occurrence: None)
  Receive Date: 20150303
  Receipt Date: 20150303
  Transmission Date: 20150721
  Serious: No
  Sender: FDA-Public Use
  Company Number: None

PATIENT
  Age: 66 Year
  Sex: Male
  Weight: 97.52 kg

DRUGS (11)
  1. HYDROCODONE [Suspect]
     Active Substance: HYDROCODONE
     Indication: ARTHRALGIA
     Route: 048
     Dates: start: 20130301, end: 20150302
  2. KNEE BRACE [Concomitant]
  3. RANATIDINE [Concomitant]
  4. 2 ALLERGY PILLS [Concomitant]
  5. 2TRIMINICLONE IN EUCERIN [Concomitant]
  6. TUMERIC [Concomitant]
  7. MULTIVITAMIN [Concomitant]
     Active Substance: VITAMINS
  8. 2 INHALERS [Concomitant]
  9. CLONAZAPAM [Concomitant]
  10. AMMONIUM LACTATE. [Concomitant]
     Active Substance: AMMONIUM LACTATE
  11. BLOOD RESSURE [Concomitant]

REACTIONS (2)
  - Product barcode issue [None]
  - Drug effect decreased [None]

NARRATIVE: CASE EVENT DATE: 20150302
